FAERS Safety Report 11589242 (Version 2)
Quarter: 2015Q4

REPORT INFORMATION
  Report Type: Spontaneous
  Country: ES (occurrence: ES)
  Receive Date: 20151002
  Receipt Date: 20151009
  Transmission Date: 20160304
  Serious: Yes (Other)
  Sender: FDA-Public Use
  Company Number: ES-PFIZER INC-2015324985

PATIENT
  Age: 79 Year
  Sex: Male

DRUGS (2)
  1. VIAGRA [Suspect]
     Active Substance: SILDENAFIL CITRATE
     Dosage: 50 MG ONE OR TWO TIMES MONTHLY, AS NEEDED
     Route: 048
  2. VIAGRA [Suspect]
     Active Substance: SILDENAFIL CITRATE
     Dosage: A QUARTER TABLET
     Route: 048
     Dates: start: 2015, end: 2015

REACTIONS (5)
  - Vomiting [Unknown]
  - Abdominal pain [Unknown]
  - White blood cell count increased [Unknown]
  - Lymphocyte count abnormal [Unknown]
  - Infection [Unknown]

NARRATIVE: CASE EVENT DATE: 2015
